FAERS Safety Report 11295206 (Version 1)
Quarter: 2015Q3

REPORT INFORMATION
  Report Type: Report from Study
  Country: JP (occurrence: JP)
  Receive Date: 20150723
  Receipt Date: 20150723
  Transmission Date: 20151125
  Serious: Yes (Hospitalization)
  Sender: FDA-Public Use
  Company Number: PHHY2014JP079940

PATIENT
  Age: 41 Year
  Sex: Female

DRUGS (45)
  1. CLOZARIL [Suspect]
     Active Substance: CLOZAPINE
     Dosage: 400 MG, QD
     Route: 048
     Dates: start: 20120906, end: 20120912
  2. CLOZARIL [Suspect]
     Active Substance: CLOZAPINE
     Dosage: 600 MG, QD
     Route: 048
     Dates: start: 20140220, end: 20140404
  3. CLOZARIL [Suspect]
     Active Substance: CLOZAPINE
     Dosage: 400 MG, QD
     Route: 048
     Dates: start: 20140414, end: 20140416
  4. BICAMOL [Suspect]
     Active Substance: BIPERIDEN HYDROCHLORIDE
     Dosage: 6 MG, QD
     Route: 048
     Dates: start: 20130629, end: 20140404
  5. LODOPIN [Concomitant]
     Active Substance: ZOTEPINE
     Indication: SCHIZOPHRENIA, UNDIFFERENTIATED TYPE
     Dosage: 100 MG, QD
     Route: 048
     Dates: start: 20120628, end: 20120704
  6. DEPAKENE [Concomitant]
     Active Substance: VALPROIC ACID
     Dosage: 200 MG, QD
     Route: 048
     Dates: start: 20130629, end: 20140404
  7. ROHYPNOL [Concomitant]
     Active Substance: FLUNITRAZEPAM
     Indication: SCHIZOPHRENIA, UNDIFFERENTIATED TYPE
     Dosage: 2 MG, QD
     Route: 048
     Dates: start: 20140509
  8. CLOZARIL [Suspect]
     Active Substance: CLOZAPINE
     Dosage: 25 MG, QD
     Route: 048
     Dates: start: 20120629, end: 20120711
  9. CLOZARIL [Suspect]
     Active Substance: CLOZAPINE
     Dosage: 300 MG, QD
     Route: 048
     Dates: start: 20120816
  10. CLOZARIL [Suspect]
     Active Substance: CLOZAPINE
     Dosage: 500 MG, QD
     Route: 048
     Dates: start: 20130629, end: 20140219
  11. PYRETHIA//PROMETHAZINE HYDROCHLORIDE [Concomitant]
     Dosage: 50 MG, QD
     Route: 048
     Dates: start: 20130929, end: 20140404
  12. CLOZARIL [Suspect]
     Active Substance: CLOZAPINE
     Indication: SCHIZOPHRENIA, UNDIFFERENTIATED TYPE
     Dosage: 12.5 MG, QD
     Route: 048
     Dates: start: 20120622
  13. ZYPREXA [Concomitant]
     Active Substance: OLANZAPINE
     Indication: SCHIZOPHRENIA, UNDIFFERENTIATED TYPE
     Dosage: 15 MG, QD
     Route: 048
     Dates: start: 20120628, end: 20120822
  14. SERENACE [Concomitant]
     Active Substance: HALOPERIDOL
     Dosage: 9 MG, QD
     Route: 048
     Dates: start: 20120913, end: 20120919
  15. SERENACE [Concomitant]
     Active Substance: HALOPERIDOL
     Dosage: 9 MG, QD
     Route: 048
     Dates: start: 20140610
  16. DAIKENCHUTO [Concomitant]
     Active Substance: HERBALS
     Dosage: 7.5 G, QD
     Route: 048
     Dates: start: 20130629, end: 20140404
  17. SENNOSIDE [Concomitant]
     Active Substance: SENNOSIDES
     Indication: SCHIZOPHRENIA, UNDIFFERENTIATED TYPE
     Dosage: 24 MG, QD
     Route: 048
     Dates: start: 20120628, end: 20120928
  18. CLOZARIL [Suspect]
     Active Substance: CLOZAPINE
     Dosage: 200 MG, QD
     Route: 048
     Dates: start: 20120809, end: 20120815
  19. BICAMOL [Suspect]
     Active Substance: BIPERIDEN HYDROCHLORIDE
     Indication: AKATHISIA
     Dosage: 6 MG, QD
     Route: 048
     Dates: start: 20120628, end: 20120928
  20. HORIZON [Concomitant]
     Active Substance: DIAZEPAM
     Indication: SCHIZOPHRENIA, UNDIFFERENTIATED TYPE
     Dosage: 6 MG, QD
     Route: 048
     Dates: start: 20120628, end: 20120928
  21. HORIZON [Concomitant]
     Active Substance: DIAZEPAM
     Dosage: 11 MG, QD
     Route: 048
     Dates: start: 20130629, end: 20140404
  22. DEPAKENE [Concomitant]
     Active Substance: VALPROIC ACID
     Dosage: 400 MG, QD
     Route: 048
     Dates: start: 20140526
  23. GASMOTIN [Concomitant]
     Active Substance: MOSAPRIDE CITRATE
     Indication: PRODUCT USED FOR UNKNOWN INDICATION
     Dosage: 15 MG, QD
     Route: 048
     Dates: start: 20140415
  24. CLOZARIL [Suspect]
     Active Substance: CLOZAPINE
     Dosage: 100 MG, QD
     Route: 048
     Dates: start: 20120719, end: 20120725
  25. CLOZARIL [Suspect]
     Active Substance: CLOZAPINE
     Dosage: 600 MG, QD
     Route: 048
     Dates: start: 20140417
  26. SENNOSIDE [Concomitant]
     Active Substance: SENNOSIDES
     Dosage: 24 MG, QD
     Route: 048
     Dates: start: 20130629, end: 20140404
  27. MAGNESIUM [Concomitant]
     Active Substance: MAGNESIUM
     Indication: PRODUCT USED FOR UNKNOWN INDICATION
     Dosage: 2 G, QD
     Route: 048
     Dates: start: 20140408
  28. CLOZARIL [Suspect]
     Active Substance: CLOZAPINE
     Dosage: 125 MG, QD
     Route: 048
     Dates: start: 20120726, end: 20120801
  29. HIRNAMIN [Concomitant]
     Active Substance: PHENOTHIAZINE
     Indication: SCHIZOPHRENIA, UNDIFFERENTIATED TYPE
     Dosage: 50 MG, QD
     Route: 048
     Dates: start: 20120628, end: 20120704
  30. HALCION [Concomitant]
     Active Substance: TRIAZOLAM
     Indication: SCHIZOPHRENIA, UNDIFFERENTIATED TYPE
     Dosage: 0.25 MG, QD
     Route: 048
     Dates: start: 20120628, end: 20120928
  31. PYRETHIA//PROMETHAZINE HYDROCHLORIDE [Concomitant]
     Indication: SCHIZOPHRENIA, UNDIFFERENTIATED TYPE
     Dosage: 50 MG, QD
     Route: 048
     Dates: start: 20120628, end: 20120928
  32. DEPAKENE [Concomitant]
     Active Substance: VALPROIC ACID
     Indication: SCHIZOPHRENIA, UNDIFFERENTIATED TYPE
     Dosage: 200 MG, QD
     Route: 048
     Dates: start: 20120628, end: 20120928
  33. VEGETAMIN B [Concomitant]
     Active Substance: CHLORPROMAZINE HYDROCHLORIDE\PHENOBARBITAL\PROMETHAZINE
     Indication: SCHIZOPHRENIA, UNDIFFERENTIATED TYPE
     Dosage: 1 DF, QD
     Route: 048
     Dates: start: 20120927, end: 20120928
  34. CLOZARIL [Suspect]
     Active Substance: CLOZAPINE
     Dosage: 50 MG, QD
     Route: 048
     Dates: start: 20120712, end: 20120718
  35. CLOZARIL [Suspect]
     Active Substance: CLOZAPINE
     Dosage: 500 MG, QD
     Route: 048
     Dates: start: 20120913, end: 20120928
  36. ZYPREXA [Concomitant]
     Active Substance: OLANZAPINE
     Dosage: 10 MG, QD
     Route: 048
     Dates: start: 20120823, end: 20120829
  37. SERENACE [Concomitant]
     Active Substance: HALOPERIDOL
     Indication: SCHIZOPHRENIA, UNDIFFERENTIATED TYPE
     Dosage: 15 MG, QD
     Route: 048
     Dates: start: 20120628, end: 20120912
  38. SERENACE [Concomitant]
     Active Substance: HALOPERIDOL
     Dosage: 6 MG, QD
     Route: 048
     Dates: start: 20140526, end: 20140609
  39. DAIKENCHUTO [Concomitant]
     Active Substance: HERBALS
     Indication: SCHIZOPHRENIA, UNDIFFERENTIATED TYPE
     Dosage: 7.5 G, QD
     Route: 048
     Dates: start: 20120620, end: 20120925
  40. CLOZARIL [Suspect]
     Active Substance: CLOZAPINE
     Dosage: 150 MG, QD
     Route: 048
     Dates: start: 20120802, end: 20120808
  41. CLOZARIL [Suspect]
     Active Substance: CLOZAPINE
     Dosage: 350 MG, QD
     Route: 048
     Dates: start: 20120823, end: 20120905
  42. CLOZARIL [Suspect]
     Active Substance: CLOZAPINE
     Dosage: 300 MG, QD
     Route: 048
     Dates: start: 20140408, end: 20140413
  43. HALCION [Concomitant]
     Active Substance: TRIAZOLAM
     Dosage: 0.25 MG, QD
     Route: 048
     Dates: start: 20130629, end: 20140404
  44. DAIKENCHUTO [Concomitant]
     Active Substance: HERBALS
     Dosage: 15 G, QD
     Route: 048
     Dates: start: 20140408
  45. VEGETAMIN B [Concomitant]
     Active Substance: CHLORPROMAZINE HYDROCHLORIDE\PHENOBARBITAL\PROMETHAZINE
     Dosage: 1 DF, QD
     Route: 048
     Dates: start: 20130629, end: 20140404

REACTIONS (3)
  - Abdominal distension [Unknown]
  - Constipation [Recovered/Resolved]
  - Vomiting [Unknown]

NARRATIVE: CASE EVENT DATE: 20140404
